FAERS Safety Report 6063767-5 (Version None)
Quarter: 2009Q1

REPORT INFORMATION
  Report Type: 
  Country: None (occurrence: None)
  Receive Date: 20090130
  Receipt Date: 20090129
  Transmission Date: 20090719
  Serious: Yes (Hospitalization)
  Sender: FDA-Public Use
  Company Number: 2008AL006881

PATIENT
  Age: 75 Year
  Sex: Male
  Weight: 99.7913 kg

DRUGS (11)
  1. DIGOXIN [Suspect]
     Indication: CARDIAC DISORDER
     Dosage: 0.25MG, DAILY, PO
     Route: 048
     Dates: start: 20070101, end: 20080101
  2. FUROSEMIDE [Concomitant]
  3. ARICEPT [Concomitant]
  4. NAMENDA [Concomitant]
  5. PLAVIX [Concomitant]
  6. WARFARIN SODIUM [Concomitant]
  7. LISINOPRIL [Concomitant]
  8. LIPITOR [Concomitant]
  9. ALLOPURINOL [Concomitant]
  10. GLYBURIDE [Concomitant]
  11. KLONOPIN [Concomitant]

REACTIONS (7)
  - CARDIAC DISORDER [None]
  - DIARRHOEA [None]
  - DIZZINESS [None]
  - DYSPNOEA [None]
  - FLATULENCE [None]
  - NAUSEA [None]
  - PALPITATIONS [None]
